FAERS Safety Report 25472854 (Version 1)
Quarter: 2025Q2

REPORT INFORMATION
  Report Type: Spontaneous
  Country: FR (occurrence: FR)
  Receive Date: 20250624
  Receipt Date: 20250624
  Transmission Date: 20250716
  Serious: Yes (Hospitalization)
  Sender: NOVARTIS
  Company Number: FR-002147023-NVSC2025FR099533

PATIENT
  Age: 48 Year
  Sex: Female
  Weight: 83 kg

DRUGS (2)
  1. CYCLOSPORINE [Suspect]
     Active Substance: CYCLOSPORINE
     Indication: Product used for unknown indication
     Route: 042
     Dates: start: 20250521
  2. MYCOPHENOLATE MOFETIL [Concomitant]
     Active Substance: MYCOPHENOLATE MOFETIL
     Indication: Product used for unknown indication
     Route: 042
     Dates: start: 20250521

REACTIONS (2)
  - Bacterial sepsis [Not Recovered/Not Resolved]
  - Alpha haemolytic streptococcal infection [Not Recovered/Not Resolved]

NARRATIVE: CASE EVENT DATE: 20250531
